FAERS Safety Report 8825242 (Version 1)
Quarter: 2012Q4

REPORT INFORMATION
  Report Type: 
  Country: US (occurrence: US)
  Receive Date: 20121004
  Receipt Date: 20121004
  Transmission Date: 20130627
  Serious: Yes (Death, Other)
  Sender: FDA-Public Use
  Company Number: US-ROCHE-1133020

PATIENT
  Sex: Male

DRUGS (7)
  1. RITUXAN [Suspect]
     Indication: DIFFUSE LARGE B-CELL LYMPHOMA
     Route: 065
     Dates: start: 20011101
  2. RITUXAN [Suspect]
     Indication: OFF LABEL USE
  3. CYCLOPHOSPHAMIDE [Concomitant]
  4. HYDROXYDAUNORUBICIN [Concomitant]
  5. VINCRISTIN [Concomitant]
  6. PREDNISONE [Concomitant]
  7. ALTACE [Concomitant]
     Indication: HYPERTENSION

REACTIONS (5)
  - Death [Fatal]
  - Flank pain [Unknown]
  - Lymphadenopathy [Unknown]
  - Urinary tract infection [Unknown]
  - Dyspnoea [Unknown]
